FAERS Safety Report 5807983-3 (Version None)
Quarter: 2008Q3

REPORT INFORMATION
  Report Type: 
  Country: None (occurrence: None)
  Receive Date: 20080711
  Receipt Date: 20080629
  Transmission Date: 20090109
  Serious: Yes (Other)
  Sender: FDA-Public Use
  Company Number: US-PFIZER INC-2008054518

PATIENT
  Sex: Female
  Weight: 163.3 kg

DRUGS (3)
  1. ZOLOFT [Suspect]
     Indication: DEPRESSION
     Dates: start: 20080101, end: 20080619
  2. ZOLOFT [Suspect]
     Indication: ANXIETY
  3. LOTREL [Concomitant]
     Indication: BLOOD PRESSURE

REACTIONS (6)
  - ANXIETY [None]
  - FEAR [None]
  - INFLAMMATION [None]
  - INSOMNIA [None]
  - NERVOUSNESS [None]
  - VISUAL IMPAIRMENT [None]
